FAERS Safety Report 23135028 (Version 1)
Quarter: 2023Q4

REPORT INFORMATION
  Report Type: Spontaneous
  Country: US (occurrence: US)
  Receive Date: 20231101
  Receipt Date: 20231101
  Transmission Date: 20240110
  Serious: Yes (Other)
  Sender: FDA-Public Use
  Company Number: US-ORGANON-O2310USA003733

PATIENT
  Age: 22 Year
  Sex: Female

DRUGS (1)
  1. NEXPLANON [Suspect]
     Active Substance: ETONOGESTREL
     Dosage: 1 IMPLANT,EVERY 3 YEARS
     Route: 059
     Dates: start: 20231025

REACTIONS (9)
  - Thrombosis [Unknown]
  - Implant site pain [Unknown]
  - Implant site swelling [Unknown]
  - Implant site discolouration [Unknown]
  - Implant site haemorrhage [Unknown]
  - Haemoglobin decreased [Unknown]
  - Device deployment issue [Not Recovered/Not Resolved]
  - Device issue [Not Recovered/Not Resolved]
  - Adverse event [Unknown]

NARRATIVE: CASE EVENT DATE: 20231025
